FAERS Safety Report 15682673 (Version 1)
Quarter: 2018Q4

REPORT INFORMATION
  Report Type: Spontaneous
  Country: US (occurrence: US)
  Receive Date: 20181203
  Receipt Date: 20181203
  Transmission Date: 20190205
  Serious: No
  Sender: FDA-Public Use
  Company Number: US-SPECTRUM PHARMACEUTICALS, INC.-18-F-US-00325

PATIENT
  Age: 60 Year
  Sex: Male

DRUGS (2)
  1. FOLOTYN [Suspect]
     Active Substance: PRALATREXATE
     Indication: MYCOSIS FUNGOIDES
     Dosage: 50 MG, SINGLE
     Route: 042
     Dates: start: 20180426, end: 20180426
  2. FOLOTYN [Suspect]
     Active Substance: PRALATREXATE
     Dosage: 50 MG, SINGLE
     Route: 042
     Dates: start: 20180621, end: 20180621

REACTIONS (4)
  - Rash vesicular [Recovering/Resolving]
  - Off label use [Unknown]
  - Skin exfoliation [Recovering/Resolving]
  - Rash generalised [Recovered/Resolved]

NARRATIVE: CASE EVENT DATE: 201804
